FAERS Safety Report 23241927 (Version 1)
Quarter: 2023Q4

REPORT INFORMATION
  Report Type: Spontaneous
  Country: CN (occurrence: None)
  Receive Date: 20231129
  Receipt Date: 20231129
  Transmission Date: 20240109
  Serious: Yes (Other)
  Sender: FDA-Public Use
  Company Number: 2023A268821

PATIENT
  Age: 28200 Day
  Sex: Male
  Weight: 60 kg

DRUGS (4)
  1. ESOMEPRAZOLE MAGNESIUM [Suspect]
     Active Substance: ESOMEPRAZOLE\ESOMEPRAZOLE MAGNESIUM\ESOMEPRAZOLE MAGNESIUM DIHYDRATE
     Indication: Helicobacter infection
     Dosage: 1.00 TABLET, BID
     Route: 048
     Dates: start: 20231108, end: 20231113
  2. FURAZOLIDONE [Suspect]
     Active Substance: FURAZOLIDONE
     Indication: Helicobacter infection
     Dosage: 1.00 TABLET, BID
     Route: 048
     Dates: start: 20231108, end: 20231113
  3. AMOXICILLIN [Suspect]
     Active Substance: AMOXICILLIN
     Indication: Helicobacter infection
     Dosage: 4.00 TABLETS, BID
     Route: 048
     Dates: start: 20231108, end: 20231113
  4. BISMUTH [Concomitant]
     Active Substance: BISMUTH
     Indication: Helicobacter infection
     Dosage: 4.00 TABLETS, BID
     Route: 048
     Dates: start: 20231108, end: 20231113

REACTIONS (3)
  - Papule [Recovering/Resolving]
  - Rash erythematous [Recovering/Resolving]
  - Pruritus [Recovering/Resolving]

NARRATIVE: CASE EVENT DATE: 20231109
